FAERS Safety Report 13758227 (Version 1)
Quarter: 2017Q3

REPORT INFORMATION
  Report Type: Spontaneous
  Country: US (occurrence: US)
  Receive Date: 20170715
  Receipt Date: 20170715
  Transmission Date: 20171127
  Serious: No
  Sender: FDA-Public Use
  Company Number: None

PATIENT
  Age: 62 Year
  Sex: Female
  Weight: 55.35 kg

DRUGS (10)
  1. DEXILANT [Concomitant]
     Active Substance: DEXLANSOPRAZOLE
  2. VITAMIN D [Concomitant]
     Active Substance: CHOLECALCIFEROL
  3. EVAMIST [Concomitant]
     Active Substance: ESTRADIOL
  4. THERATEARS [Concomitant]
     Active Substance: CARBOXYMETHYLCELLULOSE SODIUM
  5. HORIZANT [Suspect]
     Active Substance: GABAPENTIN ENACARBIL
     Indication: MUSCLE SPASMS
     Dosage: ?          OTHER STRENGTH:MG;QUANTITY:5 TABLET(S);?
     Route: 048
     Dates: start: 20170714, end: 20170715
  6. MELOXICAM. [Concomitant]
     Active Substance: MELOXICAM
  7. CALCIUM [Concomitant]
     Active Substance: CALCIUM
  8. SIMVASTATIN. [Concomitant]
     Active Substance: SIMVASTATIN
  9. MULTIPLE VITAMINS [Concomitant]
     Active Substance: VITAMINS
  10. HORIZANT [Suspect]
     Active Substance: GABAPENTIN ENACARBIL
     Indication: RADICULOPATHY
     Dosage: ?          OTHER STRENGTH:MG;QUANTITY:5 TABLET(S);?
     Route: 048
     Dates: start: 20170714, end: 20170715

REACTIONS (7)
  - Somnolence [None]
  - Stupor [None]
  - Impaired work ability [None]
  - Abnormal dreams [None]
  - Alcohol use [None]
  - Headache [None]
  - Product label issue [None]

NARRATIVE: CASE EVENT DATE: 20170715
